FAERS Safety Report 4758767-9 (Version None)
Quarter: 2005Q3

REPORT INFORMATION
  Report Type: 
  Country: None (occurrence: None)
  Receive Date: 20050831
  Receipt Date: 20050831
  Transmission Date: 20060218
  Serious: Yes (Hospitalization, Other)
  Sender: FDA-Public Use
  Company Number: None

PATIENT
  Sex: Female
  Weight: 61.2 kg

DRUGS (2)
  1. METHOTREXATE [Suspect]
     Indication: NEOPLASM
     Dosage: SEE IMAGE
     Dates: start: 20050705, end: 20050726
  2. PREDNISONE [Suspect]
     Dosage: SEE IMAGE
     Route: 048
     Dates: start: 20050705, end: 20050823

REACTIONS (4)
  - CHEST X-RAY ABNORMAL [None]
  - COMPUTERISED TOMOGRAM ABNORMAL [None]
  - LUNG INFILTRATION [None]
  - PNEUMONITIS [None]
